FAERS Safety Report 7452143-6 (Version None)
Quarter: 2011Q2

REPORT INFORMATION
  Report Type: 
  Country: None (occurrence: None)
  Receive Date: 20110425
  Receipt Date: 20110413
  Transmission Date: 20111010
  Serious: Yes (Hospitalization)
  Sender: FDA-Public Use
  Company Number: 2011AM004000

PATIENT
  Age: 66 Year
  Sex: Female
  Weight: 134.2647 kg

DRUGS (7)
  1. HYDROCHLOROTHIAZIDE [Concomitant]
  2. SYMLIN [Suspect]
     Indication: TYPE 2 DIABETES MELLITUS
     Dosage: 60 MCG; BID; SC, 15 MCG; BID; SC
     Route: 058
     Dates: start: 20101115, end: 20101201
  3. SYMLIN [Suspect]
     Indication: TYPE 2 DIABETES MELLITUS
     Dosage: 60 MCG; BID; SC, 15 MCG; BID; SC
     Route: 058
     Dates: start: 20110303
  4. NOVOLOG [Concomitant]
  5. DILTIAZEM [Concomitant]
  6. DIOVAN [Concomitant]
  7. ATENOLOL [Concomitant]

REACTIONS (6)
  - INAPPROPRIATE SCHEDULE OF DRUG ADMINISTRATION [None]
  - DIZZINESS [None]
  - CELLULITIS [None]
  - HEAD DISCOMFORT [None]
  - BLOOD GLUCOSE INCREASED [None]
  - BLOOD GLUCOSE DECREASED [None]
